FAERS Safety Report 5634723-3 (Version None)
Quarter: 2008Q1

REPORT INFORMATION
  Report Type: 
  Country: None (occurrence: None)
  Receive Date: 20080221
  Receipt Date: 20080221
  Transmission Date: 20080703
  Serious: Yes (Hospitalization)
  Sender: FDA-Public Use
  Company Number: None

PATIENT
  Age: 60 Year
  Sex: Male

DRUGS (1)
  1. MORPHINE [Suspect]
     Indication: PAIN
     Dosage: 100MG  ONCE  PO
     Route: 048
     Dates: start: 20071021, end: 20071021

REACTIONS (2)
  - LETHARGY [None]
  - RESPIRATORY DEPRESSION [None]
